FAERS Safety Report 11966766 (Version 4)
Quarter: 2016Q4

REPORT INFORMATION
  Report Type: Report from Study
  Country: JP (occurrence: JP)
  Receive Date: 20160127
  Receipt Date: 20161205
  Transmission Date: 20170206
  Serious: Yes (Death)
  Sender: FDA-Public Use
  Company Number: JP-EISAI MEDICAL RESEARCH-EC-2016-013895

PATIENT
  Age: 86 Year
  Sex: Male
  Weight: 68 kg

DRUGS (10)
  1. BETAHISTINE MESILATE [Concomitant]
     Active Substance: BETAHISTINE MESILATE
  2. AZILVA [Concomitant]
     Active Substance: AZILSARTAN KAMEDOXOMIL
  3. THYRADIN S [Concomitant]
     Active Substance: LEVOTHYROXINE SODIUM
  4. LEVOTHYROXINE SODIUM HYDRATE [Concomitant]
     Active Substance: LEVOTHYROXINE SODIUM
  5. MAGMITT(MAGNESIUM OXIDE) [Concomitant]
  6. LENVIMA [Suspect]
     Active Substance: LENVATINIB
     Indication: PAPILLARY THYROID CANCER
     Route: 048
     Dates: start: 20151031, end: 20151201
  7. CALCITRIOL. [Concomitant]
     Active Substance: CALCITRIOL
  8. AMLODIPINE [Concomitant]
     Active Substance: AMLODIPINE BESYLATE
  9. RACOL [Concomitant]
     Active Substance: AMINO ACIDS\DEXTROSE\ELECTROLYTES NOS
  10. THYROTROPIN HUMAN ALFA (GENETICAL RECOMBINATION) [Concomitant]

REACTIONS (1)
  - Malignant neoplasm progression [Fatal]

NARRATIVE: CASE EVENT DATE: 20160124
